FAERS Safety Report 8335878-2 (Version None)
Quarter: 2012Q2

REPORT INFORMATION
  Report Type: 
  Country: None (occurrence: None)
  Receive Date: 20120501
  Receipt Date: 20120501
  Transmission Date: 20120825
  Serious: Yes (Other)
  Sender: FDA-Public Use
  Company Number: None

PATIENT
  Sex: Male
  Weight: 78.0187 kg

DRUGS (1)
  1. COPAXONE [Suspect]
     Indication: MULTIPLE SCLEROSIS
     Dosage: COPAXONE 20MG DAILY SUBCUTANEOUS
     Route: 058
     Dates: start: 20110414, end: 20120426

REACTIONS (1)
  - TREMOR [None]
